FAERS Safety Report 5278519-3 (Version None)
Quarter: 2007Q1

REPORT INFORMATION
  Report Type: 
  Country: None (occurrence: None)
  Receive Date: 20070328
  Receipt Date: 20070315
  Transmission Date: 20070707
  Serious: Yes (Hospitalization)
  Sender: FDA-Public Use
  Company Number: GB-NOVOPROD-261688

PATIENT

DRUGS (3)
  1. NOVOSEVEN [Suspect]
     Indication: SURGERY
     Dosage: 90 UG/KG, UNK
  2. APROTININ [Concomitant]
     Dosage: UNK, UNK
     Route: 042
  3. HEPARIN [Concomitant]
     Dosage: 400 IU/KG, UNK

REACTIONS (1)
  - CEREBROVASCULAR ACCIDENT [None]
